FAERS Safety Report 18250571 (Version 1)
Quarter: 2020Q3

REPORT INFORMATION
  Report Type: Spontaneous
  Country: US (occurrence: US)
  Receive Date: 20200910
  Receipt Date: 20200910
  Transmission Date: 20201103
  Serious: Yes (Other)
  Sender: FDA-Public Use
  Company Number: US-GW PHARMA-202009USGW03000

PATIENT

DRUGS (1)
  1. EPIDIOLEX [Suspect]
     Active Substance: CANNABIDIOL
     Indication: PRODUCT USED FOR UNKNOWN INDICATION
     Dosage: 19.01 MG/KG/DAY, 1000 MILLIGRAM, BID (MARCH RX?4 ML BID BUT PATIENT STATES 10 ML BID)
     Route: 048

REACTIONS (2)
  - Neoplasm [Unknown]
  - Memory impairment [Unknown]
